FAERS Safety Report 8975270 (Version 1)
Quarter: 2012Q4

REPORT INFORMATION
  Report Type: 
  Country: US (occurrence: US)
  Receive Date: 20121220
  Receipt Date: 20121220
  Transmission Date: 20130627
  Serious: Yes (Death)
  Sender: FDA-Public Use
  Company Number: PHEH2012US023825

PATIENT
  Age: 58 Year
  Sex: Male

DRUGS (5)
  1. AFINITOR [Suspect]
     Dosage: 10 mg, daily
     Route: 048
  2. TYLENOL [Concomitant]
  3. LORAZEPAM [Concomitant]
  4. LISINOPRIL [Concomitant]
  5. NEXUM [Concomitant]

REACTIONS (1)
  - Multi-organ failure [Fatal]
